FAERS Safety Report 9351234 (Version 1)
Quarter: 2013Q2

REPORT INFORMATION
  Report Type: Spontaneous
  Country: US (occurrence: US)
  Receive Date: 20130617
  Receipt Date: 20130617
  Transmission Date: 20140414
  Serious: No
  Sender: FDA-Public Use
  Company Number: US-UPSHER-SMITH LABORATORIES, INC.-13001409

PATIENT
  Age: 85 Year
  Sex: Female

DRUGS (1)
  1. FORTICAL [Suspect]
     Indication: OSTEOPOROSIS
     Dosage: 200 IU, QD
     Route: 045
     Dates: start: 2008

REACTIONS (3)
  - Drug ineffective [Not Recovered/Not Resolved]
  - Forearm fracture [Recovering/Resolving]
  - Nasal dryness [Not Recovered/Not Resolved]
